FAERS Safety Report 25773633 (Version 1)
Quarter: 2025Q3

REPORT INFORMATION
  Report Type: Spontaneous
  Country: US (occurrence: None)
  Receive Date: 20250906
  Receipt Date: 20250906
  Transmission Date: 20251021
  Serious: Yes (Disabling)
  Sender: FDA-CTU
  Company Number: None

PATIENT
  Age: 56 Year
  Sex: Female
  Weight: 81 kg

DRUGS (12)
  1. AZELASTINE HYDROCHLORIDE [Suspect]
     Active Substance: AZELASTINE HYDROCHLORIDE
     Indication: Nasal congestion
     Dosage: 1 SPRAY  DAILY RESPIRATORY (INHALATION)
     Route: 055
     Dates: start: 20250722, end: 20250905
  2. CETIRIZINE [Concomitant]
     Active Substance: CETIRIZINE HYDROCHLORIDE
  3. FAMOTIDINE [Concomitant]
     Active Substance: FAMOTIDINE
  4. BENADRYL [Concomitant]
     Active Substance: DIPHENHYDRAMINE HYDROCHLORIDE
  5. HYDROXYZINE [Concomitant]
     Active Substance: HYDROXYZINE HYDROCHLORIDE
  6. Thorne B-complex [Concomitant]
  7. V-C [Concomitant]
  8. NAC [Concomitant]
  9. V-D3 [Concomitant]
  10. Magtein [Concomitant]
  11. CDG [Concomitant]
  12. PROBIOTICS NOS [Concomitant]
     Active Substance: PROBIOTICS NOS

REACTIONS (13)
  - Brain fog [None]
  - Disturbance in attention [None]
  - Cognitive disorder [None]
  - Headache [None]
  - Inflammation [None]
  - Insomnia [None]
  - Sleep deficit [None]
  - Gastrointestinal disorder [None]
  - Diarrhoea [None]
  - Lethargy [None]
  - Loss of personal independence in daily activities [None]
  - Disability [None]
  - Product quality issue [None]

NARRATIVE: CASE EVENT DATE: 20250905
